FAERS Safety Report 17720296 (Version 6)
Quarter: 2020Q3

REPORT INFORMATION
  Report Type: Spontaneous
  Country: HR (occurrence: HR)
  Receive Date: 20200428
  Receipt Date: 20200810
  Transmission Date: 20201102
  Serious: Yes (Death, Hospitalization, Other)
  Sender: FDA-Public Use
  Company Number: NVSC2020HR112723

PATIENT
  Age: 64 Year
  Sex: Female
  Weight: 67 kg

DRUGS (35)
  1. FILGRASTIM [Suspect]
     Active Substance: FILGRASTIM
     Indication: FEBRILE NEUTROPENIA
     Dosage: UNK
     Route: 065
     Dates: start: 201904
  2. KYPROLIS [Suspect]
     Active Substance: CARFILZOMIB
     Indication: ADRENAL ADENOMA
     Dosage: UNK
     Route: 065
     Dates: start: 20191217
  3. LENALIDOMIDE [Concomitant]
     Active Substance: LENALIDOMIDE
     Indication: ADRENAL ADENOMA
     Dosage: UNK
     Route: 065
     Dates: start: 20190807
  4. PERINEVA [Concomitant]
     Active Substance: PERINDOPRIL ERBUMINE
     Indication: PRODUCT USED FOR UNKNOWN INDICATION
     Dosage: UNK
     Route: 065
  5. PERINEVA [Concomitant]
     Active Substance: PERINDOPRIL ERBUMINE
     Dosage: UNK
     Route: 065
  6. BYOL COR [Concomitant]
     Active Substance: BISOPROLOL FUMARATE
     Indication: PRODUCT USED FOR UNKNOWN INDICATION
     Dosage: UNK
     Route: 065
  7. THALIDOMIDE [Concomitant]
     Active Substance: THALIDOMIDE
     Indication: ADRENAL ADENOMA
     Dosage: UNK
     Route: 065
     Dates: start: 201905
  8. CLEXANE [Concomitant]
     Active Substance: ENOXAPARIN SODIUM
     Indication: PRODUCT USED FOR UNKNOWN INDICATION
     Dosage: 0.6 MILLILITER, QD
     Route: 058
  9. SORBISTERIT [Concomitant]
     Dosage: ONE DOSAGE PER DAY
     Route: 065
  10. PHYSIOTENS [Concomitant]
     Active Substance: MOXONIDINE
     Indication: PRODUCT USED FOR UNKNOWN INDICATION
     Dosage: UNK (0.2 MG IN THE MORNING + 0.4 MG IN THE EVENING)
     Route: 065
  11. CONCOR [Concomitant]
     Active Substance: BISOPROLOL FUMARATE
     Indication: PRODUCT USED FOR UNKNOWN INDICATION
     Dosage: 1.25 MILLIGRAM
     Route: 065
  12. BYOL COR [Concomitant]
     Active Substance: BISOPROLOL FUMARATE
     Dosage: UNK
     Route: 065
  13. KYPROLIS [Suspect]
     Active Substance: CARFILZOMIB
     Dosage: 70 MILLIGRAM/SQ. METER
     Route: 042
     Dates: start: 20191224, end: 20191224
  14. TARGINACT [Concomitant]
     Active Substance: NALOXONE HYDROCHLORIDE\OXYCODONE HYDROCHLORIDE
     Indication: PRODUCT USED FOR UNKNOWN INDICATION
     Dosage: UNK (5/ 2.5 MG 2 X 1 TABLET)
     Route: 065
  15. CYCLOPHOSPHAMIDE. [Concomitant]
     Active Substance: CYCLOPHOSPHAMIDE
     Indication: ADRENAL ADENOMA
     Dosage: UNK
     Route: 065
     Dates: start: 20190314
  16. ADENURIC [Concomitant]
     Active Substance: FEBUXOSTAT
     Indication: NEPHROLITHIASIS
     Dosage: 80 MILLIGRAM (1X)
     Route: 065
     Dates: start: 20191129
  17. KYPROLIS [Suspect]
     Active Substance: CARFILZOMIB
     Indication: PLASMA CELL MYELOMA
     Dosage: 20 MG/M2, QW
     Route: 042
     Dates: start: 20191217
  18. SODIUM HYDROGEN CARBONATE [Concomitant]
     Active Substance: SODIUM BICARBONATE
     Indication: PRODUCT USED FOR UNKNOWN INDICATION
     Dosage: UNK (2 X 1/4 TEA?SPOON)
     Route: 065
  19. SODIUM HYDROGEN CARBONATE [Concomitant]
     Active Substance: SODIUM BICARBONATE
     Dosage: 2 X 1/4 TEA?SPOON
     Route: 065
  20. PHYSIOTENS [Concomitant]
     Active Substance: MOXONIDINE
     Dosage: 0.2 MG IN THE MORNING + 0.4 MG IN THE EVENING
     Route: 065
  21. DEXAMETHASONE. [Concomitant]
     Active Substance: DEXAMETHASONE
     Indication: ADRENAL ADENOMA
     Dosage: UNK
     Route: 065
     Dates: start: 20190314
  22. DEXAMETHASONE. [Concomitant]
     Active Substance: DEXAMETHASONE
     Indication: PLASMA CELL MYELOMA
     Dosage: 80 MG, QW
     Route: 065
     Dates: start: 20190315, end: 20191224
  23. SORTIS [Concomitant]
     Active Substance: ATORVASTATIN
     Indication: PRODUCT USED FOR UNKNOWN INDICATION
     Dosage: UNK
     Route: 065
  24. SORTIS [Concomitant]
     Active Substance: ATORVASTATIN
     Dosage: UNK
     Route: 065
  25. PLIVIT D3 [Concomitant]
     Active Substance: CHOLECALCIFEROL
     Dosage: 6 DROP
     Route: 065
  26. CONTROLOC [Concomitant]
     Active Substance: PANTOPRAZOLE SODIUM
     Indication: PRODUCT USED FOR UNKNOWN INDICATION
     Dosage: 40 MG, QD
     Route: 065
  27. DARATUMUMAB [Concomitant]
     Active Substance: DARATUMUMAB
     Indication: ADRENAL ADENOMA
     Dosage: UNK
     Route: 065
     Dates: start: 20190807
  28. VIROLEX [Concomitant]
     Active Substance: ACYCLOVIR
     Indication: PRODUCT USED FOR UNKNOWN INDICATION
     Dosage: 200 MG
     Route: 065
  29. BORTEZOMIB. [Concomitant]
     Active Substance: BORTEZOMIB
     Indication: ADRENAL ADENOMA
     Dosage: UNK
     Route: 065
     Dates: start: 20190314, end: 20190722
  30. PLIVIT D3 [Concomitant]
     Active Substance: CHOLECALCIFEROL
     Indication: PRODUCT USED FOR UNKNOWN INDICATION
     Dosage: 6 GTT (DROPS)
     Route: 065
  31. PIPERACILLIN AND TAZOBACTAM [Concomitant]
     Active Substance: PIPERACILLIN SODIUM\TAZOBACTAM SODIUM
     Indication: ANTIBIOTIC THERAPY
     Dosage: UNK
     Route: 065
     Dates: start: 2019, end: 2019
  32. CEPHALEXINE [Concomitant]
     Active Substance: CEPHALEXIN
     Indication: ANTIBIOTIC THERAPY
     Dosage: UNK
     Route: 065
     Dates: start: 2019
  33. SORBISTERIT [Concomitant]
     Indication: PRODUCT USED FOR UNKNOWN INDICATION
     Dosage: 1 DF, QD
     Route: 065
  34. TARGINACT [Concomitant]
     Active Substance: NALOXONE HYDROCHLORIDE\OXYCODONE HYDROCHLORIDE
     Dosage: 5/ 2.5 MG 2 X 1 TABLET
     Route: 065
  35. FOLACIN [Concomitant]
     Indication: PRODUCT USED FOR UNKNOWN INDICATION
     Dosage: 5 MG
     Route: 065

REACTIONS (13)
  - Renal impairment [Recovered/Resolved]
  - Urinary tract infection pseudomonal [Unknown]
  - Protein total increased [Unknown]
  - Blood pressure increased [Unknown]
  - Thrombotic microangiopathy [Recovering/Resolving]
  - Light chain analysis increased [Unknown]
  - Disorientation [Unknown]
  - Bronchitis [Unknown]
  - Plasma cell leukaemia [Fatal]
  - Thrombotic thrombocytopenic purpura [Fatal]
  - Unresponsive to stimuli [Unknown]
  - Spinal fracture [Unknown]
  - Light chain analysis abnormal [Unknown]

NARRATIVE: CASE EVENT DATE: 1980
